FAERS Safety Report 26173018 (Version 1)
Quarter: 2025Q4

REPORT INFORMATION
  Report Type: Other
  Country: CA (occurrence: CA)
  Receive Date: 20251218
  Receipt Date: 20251218
  Transmission Date: 20260118
  Serious: Yes (Other)
  Sender: LUPIN
  Company Number: CA-LUPIN PHARMACEUTICALS INC.-2025-11305

PATIENT
  Age: 52 Year
  Sex: Female

DRUGS (32)
  1. PROPRANOLOL HYDROCHLORIDE [Suspect]
     Active Substance: PROPRANOLOL HYDROCHLORIDE
     Indication: Tremor
     Dosage: 10 MILLIGRAM, 2 EVERY 1 DAYS
     Route: 061
  2. PROPRANOLOL HYDROCHLORIDE [Suspect]
     Active Substance: PROPRANOLOL HYDROCHLORIDE
     Dosage: UNK, 2 EVERY 1 DAYS
     Route: 061
  3. PROPRANOLOL HYDROCHLORIDE [Suspect]
     Active Substance: PROPRANOLOL HYDROCHLORIDE
     Dosage: 15 MILLIGRAM, 2 EVERY 1 DAYS
     Route: 061
  4. METRONIDAZOLE [Suspect]
     Active Substance: METRONIDAZOLE
     Indication: Product used for unknown indication
     Dosage: UNK
     Route: 065
  5. OCTREOTIDE ACETATE [Suspect]
     Active Substance: OCTREOTIDE ACETATE
     Indication: Neuroendocrine carcinoma metastatic
     Dosage: 200 MICROGRAM
  6. OCTREOTIDE ACETATE [Suspect]
     Active Substance: OCTREOTIDE ACETATE
     Indication: Growth hormone-producing pituitary tumour
     Dosage: 50 MICROGRAM
  7. OCTREOTIDE ACETATE [Suspect]
     Active Substance: OCTREOTIDE ACETATE
     Dosage: 200 MICROGRAM, TID (1 EVERY 8 HOURS)
  8. OCTREOTIDE ACETATE [Suspect]
     Active Substance: OCTREOTIDE ACETATE
     Dosage: UNK
  9. OCTREOTIDE ACETATE [Suspect]
     Active Substance: OCTREOTIDE ACETATE
     Dosage: 30 MILLIGRAM, QM (1 EVERY 1 MONTH)
     Route: 065
  10. OCTREOTIDE ACETATE [Suspect]
     Active Substance: OCTREOTIDE ACETATE
     Dosage: UNK
  11. OCTREOTIDE ACETATE [Suspect]
     Active Substance: OCTREOTIDE ACETATE
     Dosage: 30 MILLIGRAM, QM
  12. OCTREOTIDE ACETATE [Suspect]
     Active Substance: OCTREOTIDE ACETATE
     Dosage: 30 MILLIGRAM, 1EVERY 3 WEEKS
  13. PRIMOVIST [Suspect]
     Active Substance: GADOXETATE DISODIUM
     Indication: Product used for unknown indication
     Dosage: UNK
  14. PRIMOVIST [Suspect]
     Active Substance: GADOXETATE DISODIUM
     Dosage: UNK
     Route: 065
  15. SERTRALINE HYDROCHLORIDE [Suspect]
     Active Substance: SERTRALINE HYDROCHLORIDE
     Indication: Product used for unknown indication
     Dosage: UNK
     Route: 065
  16. PRIMIDONE [Suspect]
     Active Substance: PRIMIDONE
     Indication: Product used for unknown indication
     Dosage: 50 MILLIGRAM, 2 EVERY 1 DAYS
     Route: 065
  17. RISPERIDONE [Suspect]
     Active Substance: RISPERIDONE
     Indication: Product used for unknown indication
     Dosage: UNK
     Route: 065
  18. SOMAVERT [Suspect]
     Active Substance: PEGVISOMANT
     Indication: Growth hormone-producing pituitary tumour
     Dosage: 15 MG, QD
     Route: 065
  19. SOMAVERT [Suspect]
     Active Substance: PEGVISOMANT
     Dosage: 30 MILLIGRAM, QW
     Route: 065
  20. CIPROFLOXACIN [Suspect]
     Active Substance: CIPROFLOXACIN
     Indication: Product used for unknown indication
     Dosage: UNK
     Route: 065
  21. ATOMOXETINE [Concomitant]
     Active Substance: ATOMOXETINE
     Indication: Product used for unknown indication
     Dosage: UNK
     Route: 065
  22. CARBAMAZEPINE [Concomitant]
     Active Substance: CARBAMAZEPINE
     Indication: Product used for unknown indication
     Dosage: UNK
     Route: 065
  23. COLACE [Concomitant]
     Active Substance: DOCUSATE SODIUM
     Indication: Product used for unknown indication
     Dosage: UNK
     Route: 065
  24. COLACE [Concomitant]
     Active Substance: DOCUSATE SODIUM
     Dosage: UNK
     Route: 065
  25. CORTEF [Concomitant]
     Active Substance: HYDROCORTISONE
     Indication: Product used for unknown indication
     Dosage: UNK
     Route: 065
  26. HYDROCORTISONE ACETATE [Concomitant]
     Active Substance: HYDROCORTISONE ACETATE
     Indication: Product used for unknown indication
     Dosage: UNK
     Route: 065
  27. MELATONIN [Concomitant]
     Active Substance: MELATONIN
     Indication: Product used for unknown indication
     Dosage: UNK
     Route: 065
  28. PEGVISOMANT [Concomitant]
     Active Substance: PEGVISOMANT
     Indication: Product used for unknown indication
     Dosage: UNK
     Route: 065
  29. STRATTERA [Concomitant]
     Active Substance: ATOMOXETINE HYDROCHLORIDE
     Indication: Product used for unknown indication
     Dosage: UNK
     Route: 065
  30. SYNTHROID [Concomitant]
     Active Substance: LEVOTHYROXINE SODIUM
     Indication: Product used for unknown indication
     Dosage: UNK
     Route: 065
  31. TESTOSTERONE [Concomitant]
     Active Substance: TESTOSTERONE
     Indication: Product used for unknown indication
     Dosage: UNK
     Route: 065
  32. MACROGOL 3350;POTASSIUM CHLORIDE;SODIUM BICARBONATE;SODIUM CHLORIDE;SO [Concomitant]
     Indication: Constipation
     Dosage: 1 DOSAGE FORM, QD
     Route: 065

REACTIONS (25)
  - Abdominal distension [Recovered/Resolved]
  - Abdominal pain [Recovered/Resolved]
  - Anxiety [Recovered/Resolved]
  - Back pain [Recovered/Resolved]
  - Blood pressure increased [Recovered/Resolved]
  - Bone pain [Recovered/Resolved]
  - Contusion [Recovered/Resolved]
  - Cough [Recovered/Resolved]
  - Drug hypersensitivity [Recovered/Resolved]
  - Epistaxis [Recovered/Resolved]
  - Fatigue [Recovered/Resolved]
  - Frustration tolerance decreased [Recovered/Resolved]
  - Haemorrhage [Recovered/Resolved]
  - Heart rate decreased [Recovered/Resolved]
  - Hypotension [Recovered/Resolved]
  - Inappropriate schedule of product administration [Unknown]
  - Injection site haemorrhage [Recovered/Resolved]
  - Injection site pain [Recovered/Resolved]
  - Injection site swelling [Recovered/Resolved]
  - Limb discomfort [Recovered/Resolved]
  - Nasal congestion [Recovered/Resolved]
  - Nasopharyngitis [Recovered/Resolved]
  - Needle issue [Unknown]
  - Rash papular [Recovered/Resolved]
  - Rubber sensitivity [Recovered/Resolved]
